FAERS Safety Report 25440059 (Version 2)
Quarter: 2025Q3

REPORT INFORMATION
  Report Type: Spontaneous
  Country: US (occurrence: US)
  Receive Date: 20250616
  Receipt Date: 20250702
  Transmission Date: 20251020
  Serious: Yes (Other)
  Sender: PFIZER
  Company Number: US-PFIZER INC-202500121828

PATIENT
  Age: 75 Year
  Sex: Female
  Weight: 42.6 kg

DRUGS (5)
  1. IBRANCE [Suspect]
     Active Substance: PALBOCICLIB
     Indication: Breast cancer metastatic
     Route: 048
     Dates: start: 202506, end: 202506
  2. FASLODEX [Concomitant]
     Active Substance: FULVESTRANT
  3. LOSARTAN [Concomitant]
     Active Substance: LOSARTAN
  4. FAMVIR [Concomitant]
     Active Substance: FAMCICLOVIR
  5. ROSUVASTATIN [Concomitant]
     Active Substance: ROSUVASTATIN

REACTIONS (3)
  - Hypertransaminasaemia [Recovered/Resolved]
  - Blood alkaline phosphatase increased [Not Recovered/Not Resolved]
  - Blood creatine increased [Not Recovered/Not Resolved]

NARRATIVE: CASE EVENT DATE: 20250601
